FAERS Safety Report 9530336 (Version 1)
Quarter: 2013Q3

REPORT INFORMATION
  Report Type: Spontaneous
  Country: US (occurrence: US)
  Receive Date: 20130917
  Receipt Date: 20130917
  Transmission Date: 20140515
  Serious: No
  Sender: FDA-Public Use
  Company Number: US-B.I. PHARMACEUTICALS,INC./RIDGEFIELD-2013-BI-28080BP

PATIENT
  Sex: Male
  Weight: 88 kg

DRUGS (15)
  1. SPIRIVA [Suspect]
     Indication: CHRONIC OBSTRUCTIVE PULMONARY DISEASE
     Dosage: 18 MCG
     Route: 055
     Dates: start: 2011
  2. TAMSULOSIN [Concomitant]
     Dosage: 0.4 MG
     Route: 048
  3. NEXIUM [Concomitant]
     Indication: GASTRIC ULCER
     Dosage: 40 MG
     Route: 048
  4. FUROSEMIDE [Concomitant]
     Indication: CARDIAC FAILURE CONGESTIVE
     Dosage: 40 MG
     Route: 048
  5. AMLODIPINE [Concomitant]
     Dosage: 5 MG
     Route: 048
  6. LOSARTAN [Concomitant]
     Indication: HYPERTENSION
     Dosage: 100 MG
     Route: 048
  7. LEFLUNOMIDE [Concomitant]
     Indication: ANKYLOSING SPONDYLITIS
     Dosage: 20 MG
     Route: 048
  8. OXYCODONE [Concomitant]
     Indication: ANKYLOSING SPONDYLITIS
     Dosage: 20 MG
     Route: 048
  9. LANTUS INSULIN [Concomitant]
     Indication: DIABETES MELLITUS
     Dosage: 10 U
     Route: 058
  10. FOLIC ACID [Concomitant]
     Dosage: 1 MG
     Route: 048
  11. HYDRALAZINE [Concomitant]
     Indication: HYPERTENSION
     Dosage: 25 MG
     Route: 048
  12. POTASSIUM [Concomitant]
     Dosage: 20 MG
     Route: 048
  13. BACLOFEN [Concomitant]
     Indication: ANKYLOSING SPONDYLITIS
     Dosage: 20 MG
     Route: 048
  14. BETATREXALL [Concomitant]
     Indication: HEART RATE INCREASED
     Dosage: 20 MG
     Route: 048
  15. PREDNISONE [Concomitant]
     Indication: ANKYLOSING SPONDYLITIS
     Dosage: 10 MG
     Route: 048

REACTIONS (1)
  - Deafness [Not Recovered/Not Resolved]
